FAERS Safety Report 5410054-1 (Version None)
Quarter: 2007Q3

REPORT INFORMATION
  Report Type: 
  Country: None (occurrence: None)
  Receive Date: 20070809
  Receipt Date: 20070801
  Transmission Date: 20080115
  Serious: Yes (Hospitalization)
  Sender: FDA-Public Use
  Company Number: DE-AMGEN-US232898

PATIENT
  Age: 50 Year
  Sex: Female
  Weight: 56 kg

DRUGS (4)
  1. ENBREL [Suspect]
     Indication: RHEUMATOID ARTHRITIS
     Route: 058
     Dates: start: 20020301, end: 20070101
  2. IBUPROFEN TABLETS [Concomitant]
     Indication: RHEUMATOID ARTHRITIS
     Dosage: UNKNOWN
     Route: 048
  3. METHOTREXATE [Concomitant]
     Indication: RHEUMATOID ARTHRITIS
     Dosage: 10 MG PER WEEK
     Dates: start: 19990801, end: 19991101
  4. CORTISONE ACETATE TAB [Concomitant]
     Indication: RHEUMATOID ARTHRITIS
     Dosage: UNKNOWN

REACTIONS (5)
  - CONDITION AGGRAVATED [None]
  - DRUG EFFECT DECREASED [None]
  - FIBROMYALGIA [None]
  - RHEUMATOID ARTHRITIS [None]
  - RHEUMATOID NODULE [None]
